FAERS Safety Report 8960158 (Version 3)
Quarter: 2013Q1

REPORT INFORMATION
  Report Type: Spontaneous
  Country: BR (occurrence: BR)
  Receive Date: 20121212
  Receipt Date: 20130220
  Transmission Date: 20140127
  Serious: Yes (Other)
  Sender: FDA-Public Use
  Company Number: PHHY2012BR113287

PATIENT
  Sex: Male
  Weight: 107 kg

DRUGS (7)
  1. DIOVAN [Suspect]
     Indication: HYPERTENSION
     Dosage: 1 DF (320MG), DAILY
     Route: 048
  2. DIOVAN [Suspect]
     Dosage: 1 DF (160MG), BID (MORNING AND NIGHT)
  3. CATAFLAM [Suspect]
     Dosage: UNK UKN, UNK
  4. SELO-ZOK [Suspect]
     Indication: BLOOD PRESSURE ABNORMAL
     Dosage: 1 DF(25 MG), (AT 2:00 AM)
  5. ANCORON [Suspect]
     Indication: ARRHYTHMIA
     Dosage: 1 DF(100 MG), DAILY
  6. CIPROFIBRATE [Suspect]
     Indication: BLOOD TRIGLYCERIDES INCREASED
     Dosage: 1 DF, DAILY AT NIGHT
  7. TANSULOSINA [Concomitant]
     Indication: DYSURIA
     Dosage: 1 DF (0.4 MG), DAILY
     Route: 048

REACTIONS (9)
  - Phlebitis [Recovered/Resolved]
  - Cardiovascular disorder [Recovered/Resolved]
  - Urinary tract obstruction [Not Recovered/Not Resolved]
  - Blood pressure inadequately controlled [Recovered/Resolved]
  - Pigmentation disorder [Not Recovered/Not Resolved]
  - Weight increased [Recovered/Resolved]
  - Inflammation [Recovering/Resolving]
  - Arthralgia [Not Recovered/Not Resolved]
  - Fatigue [Not Recovered/Not Resolved]
